FAERS Safety Report 6489662-5 (Version None)
Quarter: 2009Q4

REPORT INFORMATION
  Report Type: 
  Country: None (occurrence: None)
  Receive Date: 20091207
  Receipt Date: 20091120
  Transmission Date: 20100525
  Serious: Yes (Hospitalization)
  Sender: FDA-Public Use
  Company Number: DEP_00310_2009

PATIENT
  Age: 71 Year
  Sex: Female

DRUGS (10)
  1. METFORMIN HCL [Suspect]
     Indication: TYPE 2 DIABETES MELLITUS
     Dosage: (1 G BID)
  2. ALLOPURINOL [Concomitant]
  3. PERINDOPRIL [Concomitant]
  4. ATENOLOL [Concomitant]
  5. IRBESARTAN [Concomitant]
  6. BENDROFLUMETHIAZIDE [Concomitant]
  7. DOXAZOSIN MESYLATE [Concomitant]
  8. GLICLAZIDE [Concomitant]
  9. ASPIRIN [Concomitant]
  10. CLOPIDOGREL [Concomitant]

REACTIONS (8)
  - BLOOD PRESSURE DECREASED [None]
  - DEHYDRATION [None]
  - HYPOGLYCAEMIC COMA [None]
  - LACTIC ACIDOSIS [None]
  - LOWER RESPIRATORY TRACT INFECTION [None]
  - RENAL CYST [None]
  - RENAL IMPAIRMENT [None]
  - TACHYPNOEA [None]
